FAERS Safety Report 4686184-9 (Version None)
Quarter: 2005Q2

REPORT INFORMATION
  Report Type: 
  Country: None (occurrence: None)
  Receive Date: 20050609
  Receipt Date: 20050601
  Transmission Date: 20051028
  Serious: Yes (Hospitalization)
  Sender: FDA-Public Use
  Company Number: DE-BOEHRINGER INGELHEIM PHARMACEUTICALS, INC.-2005-DE-02112BY

PATIENT
  Sex: Female

DRUGS (7)
  1. KINZALKOMB [Suspect]
     Indication: HYPERTENSION
     Route: 048
     Dates: start: 20040123, end: 20040702
  2. KINZAL [Suspect]
     Indication: HYPERTENSION
     Route: 048
     Dates: start: 20040923
  3. ASS 100 [Concomitant]
     Route: 065
  4. BISOPROLOL FUMARATE [Concomitant]
     Route: 065
  5. MOLSIDOMIN [Concomitant]
     Route: 065
  6. NATRILIX [Concomitant]
     Route: 065
  7. SORTIS [Concomitant]
     Route: 065

REACTIONS (2)
  - ADVERSE EVENT [None]
  - HOSPITALISATION [None]
